FAERS Safety Report 9695617 (Version 1)
Quarter: 2013Q4

REPORT INFORMATION
  Report Type: Spontaneous
  Country: US (occurrence: None)
  Receive Date: 20131118
  Receipt Date: 20131118
  Transmission Date: 20140711
  Serious: Yes (Other)
  Sender: FDA-Public Use
  Company Number: None

PATIENT
  Age: 53 Year
  Sex: Female
  Weight: 70.76 kg

DRUGS (6)
  1. MIDOSTAURIN [Suspect]
     Indication: ACUTE MYELOID LEUKAEMIA
     Dosage: DAYS 8-21
     Route: 048
  2. BORTEZOMIB [Suspect]
     Indication: MYELODYSPLASTIC SYNDROME
     Dosage: DAYS 8 + 15
     Route: 058
  3. SODIUM CHLORIDE [Concomitant]
  4. CASPOFUNGIN [Concomitant]
  5. AZTREONAM [Concomitant]
  6. VANCOMYCIN [Concomitant]

REACTIONS (8)
  - Dyspnoea [None]
  - Febrile neutropenia [None]
  - Hypotension [None]
  - Hypoxia [None]
  - Chest discomfort [None]
  - Device related infection [None]
  - Pneumonia klebsiella [None]
  - Sinus tachycardia [None]
